FAERS Safety Report 8813802 (Version 1)
Quarter: 2012Q4

REPORT INFORMATION
  Report Type: 
  Country: US (occurrence: US)
  Receive Date: 20120928
  Receipt Date: 20120928
  Transmission Date: 20130627
  Serious: No
  Sender: FDA-Public Use
  Company Number: US-BIOGENIDEC-2012BI039710

PATIENT
  Age: 42 Year
  Sex: Female

DRUGS (2)
  1. TYSABRI [Suspect]
     Indication: MULTIPLE SCLEROSIS
     Route: 042
     Dates: start: 20120416
  2. MAXALT [Concomitant]
     Indication: MIGRAINE

REACTIONS (13)
  - Confusional state [Recovered/Resolved]
  - Balance disorder [Not Recovered/Not Resolved]
  - Coordination abnormal [Recovered/Resolved]
  - Photosensitivity reaction [Not Recovered/Not Resolved]
  - Visual impairment [Unknown]
  - Cardiac flutter [Recovered/Resolved]
  - Feeling jittery [Recovered/Resolved]
  - Gait disturbance [Recovered/Resolved]
  - Headache [Recovered/Resolved]
  - Fatigue [Recovered/Resolved]
  - Asthenia [Recovered/Resolved]
  - Dizziness [Not Recovered/Not Resolved]
  - Arthralgia [Recovered/Resolved]
